FAERS Safety Report 21487290 (Version 1)
Quarter: 2022Q4

REPORT INFORMATION
  Report Type: Spontaneous
  Country: US (occurrence: US)
  Receive Date: 20221020
  Receipt Date: 20221020
  Transmission Date: 20230112
  Serious: No
  Sender: FDA-Public Use
  Company Number: US-ANIPHARMA-2022-US-004339

PATIENT
  Age: 45 Year
  Sex: Male
  Weight: 145.15 kg

DRUGS (5)
  1. CHOLESTYRAMINE [Suspect]
     Active Substance: CHOLESTYRAMINE
     Indication: Irritable bowel syndrome
     Dosage: ONE TEASPOON DAILY
     Route: 048
     Dates: start: 20220202
  2. POTASSIUM [Concomitant]
     Active Substance: POTASSIUM
     Dosage: 270 MG DAILY
     Route: 048
     Dates: start: 2002
  3. FENOFIBRIC ACID [Concomitant]
     Active Substance: FENOFIBRIC ACID
     Dosage: 145 MG DAILY
     Route: 048
     Dates: start: 2016
  4. VITAMIN C [Concomitant]
     Active Substance: ASCORBIC ACID
     Dosage: 1000 MG DAILY
     Route: 048
     Dates: start: 2018
  5. VITAMIN D [Concomitant]
     Active Substance: VITAMIN D NOS
     Dosage: 150MCG DAILY
     Route: 048
     Dates: start: 2018

REACTIONS (4)
  - Abdominal pain upper [Not Recovered/Not Resolved]
  - Irritable bowel syndrome [Not Recovered/Not Resolved]
  - Intentional product misuse [Not Recovered/Not Resolved]
  - Incorrect dosage administered [Not Recovered/Not Resolved]

NARRATIVE: CASE EVENT DATE: 20220202
